FAERS Safety Report 9119893 (Version 2)
Quarter: 2013Q2

REPORT INFORMATION
  Report Type: Spontaneous
  Country: US (occurrence: US)
  Receive Date: 20130226
  Receipt Date: 20130424
  Transmission Date: 20140414
  Serious: No
  Sender: FDA-Public Use
  Company Number: US-PFIZER INC-2013068204

PATIENT
  Age: 12 Year
  Sex: Male
  Weight: 56.69 kg

DRUGS (3)
  1. ADVIL [Suspect]
     Indication: MIGRAINE
     Dosage: 2 TABLETS, UNK
     Dates: start: 201302
  2. ADVIL [Suspect]
     Dosage: 6-8 TABLETS, UNK
     Dates: start: 201302, end: 20130220
  3. ACETAMINOPHEN [Concomitant]
     Indication: MIGRAINE
     Dosage: 2 TABLETS, UNK

REACTIONS (2)
  - Intentional drug misuse [Unknown]
  - Drug ineffective [Unknown]
